FAERS Safety Report 8523068 (Version 2)
Quarter: 2012Q4

REPORT INFORMATION
  Report Type: 
  Country: US (occurrence: US)
  Receive Date: 20120420
  Receipt Date: 20120917
  Transmission Date: 20130627
  Serious: Yes (Other)
  Sender: FDA-Public Use
  Company Number: US-PFIZER INC-2012093873

PATIENT
  Age: 3 Year
  Sex: Female

DRUGS (1)
  1. SOLU-CORTEF [Suspect]
     Dosage: UNK
     Dates: start: 201107

REACTIONS (5)
  - Convulsion [Unknown]
  - Hypoglycaemia [Recovering/Resolving]
  - Urinary tract infection [Unknown]
  - Lethargy [Not Recovered/Not Resolved]
  - Vomiting [Recovered/Resolved]
